FAERS Safety Report 25263244 (Version 1)
Quarter: 2025Q2

REPORT INFORMATION
  Report Type: Spontaneous
  Country: US (occurrence: US)
  Receive Date: 20250502
  Receipt Date: 20250502
  Transmission Date: 20250717
  Serious: Yes (Life-Threatening, Hospitalization)
  Sender: MANKIND PHARMA
  Company Number: US-MankindUS-000374

PATIENT
  Age: 53 Year
  Sex: Male
  Weight: 107 kg

DRUGS (7)
  1. SUCCINYLCHOLINE CHLORIDE [Suspect]
     Active Substance: SUCCINYLCHOLINE CHLORIDE
     Indication: General anaesthesia
  2. LIDOCAINE HYDROCHLORIDE [Concomitant]
     Active Substance: LIDOCAINE HYDROCHLORIDE
     Indication: General anaesthesia
     Route: 042
  3. MIDAZOLAM [Concomitant]
     Active Substance: MIDAZOLAM
     Indication: General anaesthesia
     Route: 042
  4. FENTANYL [Concomitant]
     Active Substance: FENTANYL
     Indication: General anaesthesia
     Route: 042
  5. ROCURONIUM [Concomitant]
     Active Substance: ROCURONIUM BROMIDE
     Indication: Induction of anaesthesia
  6. PROPOFOL [Concomitant]
     Active Substance: PROPOFOL
     Indication: General anaesthesia
     Route: 042
  7. SEVOFLURANE [Concomitant]
     Active Substance: SEVOFLURANE
     Indication: Maintenance of anaesthesia

REACTIONS (1)
  - Pseudocholinesterase deficiency [Recovered/Resolved]
